FAERS Safety Report 8255607-0 (Version None)
Quarter: 2012Q2

REPORT INFORMATION
  Report Type: 
  Country: None (occurrence: None)
  Receive Date: 20120403
  Receipt Date: 20120326
  Transmission Date: 20120825
  Serious: Yes (Other)
  Sender: FDA-Public Use
  Company Number: PHHY2012JP027166

PATIENT
  Age: 88 Year
  Sex: Male

DRUGS (4)
  1. TAMSULOSIN HCL [Concomitant]
     Indication: BENIGN PROSTATIC HYPERPLASIA
     Route: 048
  2. TEGRETOL [Suspect]
     Dosage: 0.1 MG, ONCE DAILY, TAKEN IN THE EVENING
     Route: 048
  3. TEGRETOL [Suspect]
     Dosage: 0.8 G, TWO DOSES PER DAY, ONCE IN THE MORNING AND ONCE IN THE EVENING
     Dates: start: 20120315
  4. TEGRETOL [Suspect]
     Indication: CONVULSION
     Dosage: 0.4 MG, IN TWO DOSES PER DAY, ONCE IN THE MORNING AND ONCE IN THE EVENING
     Route: 048
     Dates: start: 20120206

REACTIONS (4)
  - APATHY [None]
  - DYSURIA [None]
  - EPILEPSY [None]
  - PYREXIA [None]
